FAERS Safety Report 19011651 (Version 1)
Quarter: 2021Q1

REPORT INFORMATION
  Report Type: Spontaneous
  Country: FR (occurrence: FR)
  Receive Date: 20210316
  Receipt Date: 20210316
  Transmission Date: 20210420
  Serious: Yes (Hospitalization)
  Sender: FDA-Public Use
  Company Number: FR-TEVA-2021-FR-1889343

PATIENT
  Age: 97 Year
  Sex: Male

DRUGS (6)
  1. RAMIPRIL. [Suspect]
     Active Substance: RAMIPRIL
     Indication: WRONG PATIENT
     Dosage: 5MILLIGRAM
     Route: 048
     Dates: start: 20210209, end: 20210209
  2. LAMICTAL [Concomitant]
     Active Substance: LAMOTRIGINE
     Indication: EPILEPSY
     Dosage: NOT ADMINISTERED
     Route: 048
     Dates: end: 20210208
  3. JANUMET [Concomitant]
     Active Substance: METFORMIN HYDROCHLORIDE\SITAGLIPTIN PHOSPHATE
     Indication: WRONG PATIENT
     Dosage: 1DOSAGEFORM
     Route: 048
     Dates: start: 20210208, end: 20210209
  4. SERESTA 50 MG, COMPRIME SECABLE [Suspect]
     Active Substance: OXAZEPAM
     Indication: WRONG PATIENT
     Dosage: 1DOSAGEFORM
     Route: 048
     Dates: start: 20210209, end: 20210209
  5. LEVOTHYROX 75 MICROGRAMMES, COMPRIME SECABLE [Concomitant]
     Active Substance: LEVOTHYROXINE SODIUM
     Indication: WRONG PATIENT
     Dosage: 1DOSAGEFORM
     Route: 048
     Dates: start: 20210208, end: 20210210
  6. MIRTAZAPINE. [Suspect]
     Active Substance: MIRTAZAPINE
     Indication: WRONG PATIENT
     Dosage: 1DOSAGEFORM
     Route: 048
     Dates: start: 20210208, end: 20210209

REACTIONS (4)
  - Wrong patient received product [Recovered/Resolved]
  - Hypotension [Recovered/Resolved]
  - Coma [Recovered/Resolved]
  - Myoclonus [Recovered/Resolved]

NARRATIVE: CASE EVENT DATE: 20210208
